FAERS Safety Report 17050158 (Version 2)
Quarter: 2019Q4

REPORT INFORMATION
  Report Type: Spontaneous
  Country: JP (occurrence: JP)
  Receive Date: 20191119
  Receipt Date: 20191203
  Transmission Date: 20200122
  Serious: Yes (Other)
  Sender: FDA-Public Use
  Company Number: NVSJ2019JP001861

PATIENT
  Age: 82 Year
  Sex: Male

DRUGS (1)
  1. EXELON PATCH [Suspect]
     Active Substance: RIVASTIGMINE
     Indication: DEMENTIA ALZHEIMER^S TYPE
     Dosage: 4.6 MG, QD (PATCH5(CM2))
     Route: 062
     Dates: start: 20191018, end: 20191022

REACTIONS (2)
  - Cerebral infarction [Unknown]
  - Nausea [Unknown]

NARRATIVE: CASE EVENT DATE: 20191021
